FAERS Safety Report 9128805 (Version 5)
Quarter: 2014Q4

REPORT INFORMATION
  Report Type: Spontaneous
  Country: JP (occurrence: JP)
  Receive Date: 20130125
  Receipt Date: 20141219
  Transmission Date: 20150529
  Serious: Yes (Hospitalization, Other)
  Sender: FDA-Public Use
  Company Number: JP-TEVA-382575USA

PATIENT
  Age: 33 Year
  Sex: Female

DRUGS (21)
  1. ZINC [Suspect]
     Active Substance: ZINC\ZINC CHLORIDE
     Dosage: 150 MILLIGRAM DAILY;
     Route: 048
     Dates: start: 20110603, end: 20120602
  2. MIYA-BM [Concomitant]
     Active Substance: CLOSTRIDIUM BUTYRICUM SPORES STRAIN M-55
     Route: 048
     Dates: start: 20100508
  3. POSTERISAN FORTE [Concomitant]
     Active Substance: LIDOCAINE
     Indication: ANAL FISTULA
     Route: 054
     Dates: start: 20110601
  4. PROPETO [Concomitant]
     Route: 061
     Dates: start: 20130205
  5. PREDNISOLONE. [Concomitant]
     Active Substance: PREDNISOLONE
     Dosage: 4 MILLIGRAM DAILY;
     Route: 048
     Dates: start: 20111125, end: 20120229
  6. MEDROL [Concomitant]
     Active Substance: METHYLPREDNISOLONE
     Dosage: 40 MILLIGRAM DAILY;
     Route: 048
     Dates: start: 20131008, end: 20131107
  7. ZINC [Suspect]
     Active Substance: ZINC\ZINC CHLORIDE
     Indication: HEPATO-LENTICULAR DEGENERATION
     Dosage: 150 MILLIGRAM DAILY;
     Route: 048
     Dates: start: 20080603, end: 20100113
  8. NORDITROPIN [Concomitant]
     Active Substance: SOMATROPIN
     Dates: start: 20120627
  9. PROGRAF [Concomitant]
     Active Substance: TACROLIMUS\TACROLIMUS ANHYDROUS
     Dosage: 3 MILLIGRAM DAILY;
     Route: 048
     Dates: start: 20110412
  10. FLORID [Concomitant]
     Active Substance: MICONAZOLE
     Dates: start: 20120229
  11. MEDROL [Concomitant]
     Active Substance: METHYLPREDNISOLONE
     Dosage: 24 MILLIGRAM DAILY;
     Route: 048
     Dates: start: 20120530, end: 20120630
  12. OZEX [Concomitant]
     Active Substance: TOSUFLOXACIN TOSYLATE
     Indication: URINARY TRACT INFECTION
     Dosage: 450 MILLIGRAM DAILY;
     Route: 048
     Dates: start: 20120530, end: 20120606
  13. POSTERISAN FORTE [Concomitant]
     Active Substance: LIDOCAINE
     Route: 054
     Dates: start: 20121129, end: 20130205
  14. PREDNISOLONE. [Concomitant]
     Active Substance: PREDNISOLONE
     Indication: HYPERSENSITIVITY
     Dosage: 20 MILLIGRAM DAILY;
     Route: 048
     Dates: start: 20110927, end: 20111129
  15. PREDNISOLONE. [Concomitant]
     Active Substance: PREDNISOLONE
     Dosage: 3 MILLIGRAM DAILY;
     Route: 048
     Dates: start: 20120627
  16. FLORID [Concomitant]
     Active Substance: MICONAZOLE
     Dates: start: 20121107
  17. ZINC [Suspect]
     Active Substance: ZINC\ZINC CHLORIDE
     Dosage: 150 MILLIGRAM DAILY;
     Route: 048
     Dates: start: 20100508
  18. MEDROL [Concomitant]
     Active Substance: METHYLPREDNISOLONE
     Dosage: 12 MILLIGRAM DAILY;
     Route: 048
     Dates: start: 20120627, end: 20120807
  19. PRANLUKAST [Concomitant]
     Active Substance: PRANLUKAST
     Route: 048
     Dates: start: 20121107, end: 20121107
  20. GENOTROPIN [Concomitant]
     Active Substance: SOMATROPIN
     Dates: start: 20130206
  21. ZESULAN [Concomitant]
     Active Substance: MEQUITAZINE
     Route: 048
     Dates: start: 20121107, end: 20121121

REACTIONS (5)
  - Colitis ulcerative [Not Recovered/Not Resolved]
  - Urinary tract infection [Recovering/Resolving]
  - Colitis ulcerative [Recovering/Resolving]
  - Drug hypersensitivity [Unknown]
  - Growth hormone deficiency [Recovering/Resolving]

NARRATIVE: CASE EVENT DATE: 20100113
